FAERS Safety Report 16781752 (Version 1)
Quarter: 2019Q3

REPORT INFORMATION
  Report Type: Spontaneous
  Country: IR (occurrence: IR)
  Receive Date: 20190906
  Receipt Date: 20190906
  Transmission Date: 20191005
  Serious: Yes (Other)
  Sender: FDA-Public Use
  Company Number: IR-SA-2019SA245917

PATIENT
  Age: 7 Year
  Sex: Male

DRUGS (1)
  1. TRIAMCINOLONE ACETONIDE. [Suspect]
     Active Substance: TRIAMCINOLONE ACETONIDE
     Indication: GRANULOMA ANNULARE
     Dosage: 2 DF, TOTAL, INJECTION
     Route: 026

REACTIONS (2)
  - Infection reactivation [Recovered/Resolved with Sequelae]
  - Cutaneous leishmaniasis [Recovered/Resolved with Sequelae]
